FAERS Safety Report 6187685-7 (Version None)
Quarter: 2009Q2

REPORT INFORMATION
  Report Type: 
  Country: None (occurrence: None)
  Receive Date: 20090511
  Receipt Date: 20090429
  Transmission Date: 20091009
  Serious: Yes (Death, Other)
  Sender: FDA-Public Use
  Company Number: ITPFP-L-20080007

PATIENT
  Age: 60 Year
  Sex: Male

DRUGS (3)
  1. NAVELBINE [Suspect]
     Indication: DIFFUSE LARGE B-CELL LYMPHOMA STAGE I
     Dosage: 25 MG/M2 IV
     Route: 042
     Dates: end: 20070831
  2. GEMCITABINE [Suspect]
     Indication: DIFFUSE LARGE B-CELL LYMPHOMA STAGE I
     Dosage: 1000 MG/M2 IV
     Route: 042
  3. FILGRASTIM [Concomitant]

REACTIONS (5)
  - CATHETER RELATED INFECTION [None]
  - MUCOSAL INFLAMMATION [None]
  - NEUTROPENIA [None]
  - SEPTIC SHOCK [None]
  - SYSTEMIC CANDIDA [None]
